FAERS Safety Report 7912762-7 (Version None)
Quarter: 2011Q4

REPORT INFORMATION
  Report Type: 
  Country: None (occurrence: None)
  Receive Date: 20111114
  Receipt Date: 20111109
  Transmission Date: 20120403
  Serious: Yes (Hospitalization)
  Sender: FDA-Public Use
  Company Number: US-B.I. PHARMACEUTICALS,INC./RIDGEFIELD-2011-BP-25969BP

PATIENT
  Age: 69 Year
  Sex: Male

DRUGS (10)
  1. PRILOSEC [Concomitant]
     Indication: PROPHYLAXIS
     Dosage: 20 MG
     Route: 048
  2. AMIODARONE HCL [Concomitant]
     Indication: ATRIAL FIBRILLATION
     Dosage: 200 MG
     Route: 048
  3. METOPROLOL SUCCINATE [Concomitant]
     Indication: CORONARY ARTERY DISEASE
     Dosage: 100 MG
     Route: 048
  4. LIPITOR [Concomitant]
     Indication: CORONARY ARTERY DISEASE
     Dosage: 80 MG
     Route: 048
     Dates: end: 20111026
  5. WELLBUTRIN XL [Concomitant]
     Indication: DEPRESSION
     Dosage: 450 MG
     Route: 048
  6. PRADAXA [Suspect]
     Indication: ATRIAL FIBRILLATION
     Dosage: 150 MG
     Route: 048
     Dates: start: 20111025, end: 20111026
  7. ASPIRIN [Concomitant]
     Indication: CORONARY ARTERY DISEASE
     Dosage: 81 MG
     Route: 048
  8. ZOCOR [Concomitant]
     Indication: CORONARY ARTERY DISEASE
     Dosage: 10 MG
     Route: 048
     Dates: start: 20111026
  9. LASIX [Concomitant]
     Indication: PERIPHERAL VASCULAR DISORDER
     Dosage: 40 MG
     Route: 048
     Dates: end: 20111108
  10. SINEQUAN [Concomitant]
     Indication: DEPRESSION
     Dosage: 300 MG
     Route: 048

REACTIONS (1)
  - MEDIASTINAL HAEMORRHAGE [None]
